FAERS Safety Report 4626922-4 (Version None)
Quarter: 2005Q2

REPORT INFORMATION
  Report Type: 
  Country: None (occurrence: None)
  Receive Date: 20050405
  Receipt Date: 20041115
  Transmission Date: 20051028
  Serious: Yes (Hospitalization)
  Sender: FDA-Public Use
  Company Number: A0534073A

PATIENT
  Sex: Male

DRUGS (2)
  1. TUMS SMOOTH DISSOLVE TABLETS, PEPPERMINT [Suspect]
     Dates: start: 20040101
  2. PREVACID [Concomitant]
     Route: 048
     Dates: start: 20030101

REACTIONS (3)
  - DRUG EXPOSURE DURING PREGNANCY [None]
  - NEURAL TUBE DEFECT [None]
  - SPINA BIFIDA [None]
